FAERS Safety Report 9414598 (Version 3)
Quarter: 2013Q3

REPORT INFORMATION
  Report Type: Spontaneous
  Country: IT (occurrence: IT)
  Receive Date: 20130723
  Receipt Date: 20130911
  Transmission Date: 20140515
  Serious: Yes (Death, Hospitalization, Other)
  Sender: FDA-Public Use
  Company Number: IT-TEVA-419701ISR

PATIENT
  Age: 88 Year
  Sex: Female

DRUGS (8)
  1. RAMIPRIL [Suspect]
     Indication: HYPERTENSION
     Dosage: 5 MILLIGRAM DAILY;
     Route: 048
     Dates: start: 20100101, end: 20130527
  2. SPIRONOLATONE [Suspect]
     Dosage: 50 MILLIGRAM DAILY;
     Route: 048
     Dates: start: 20100101, end: 20130527
  3. CARDIRENE 160 MG [Concomitant]
  4. TIKLID 250 MG [Concomitant]
  5. FUROSEMIDE [Concomitant]
  6. OMEPRAZOLO [Concomitant]
  7. ALLOPURINOLO [Concomitant]
  8. BISOPROLOLO EMIFUMARATO [Concomitant]

REACTIONS (3)
  - Cardiac arrest [Fatal]
  - Renal failure acute [Unknown]
  - Intestinal ischaemia [Unknown]
